FAERS Safety Report 7465448-X (Version None)
Quarter: 2011Q2

REPORT INFORMATION
  Report Type: 
  Country: None (occurrence: None)
  Receive Date: 20110509
  Receipt Date: 20110427
  Transmission Date: 20111010
  Serious: Yes (Other)
  Sender: FDA-Public Use
  Company Number: US-ROCHE-747563

PATIENT
  Sex: Male
  Weight: 59 kg

DRUGS (3)
  1. ACCUTANE [Suspect]
     Route: 065
     Dates: start: 19960101, end: 19970101
  2. ACCUTANE [Suspect]
     Route: 065
     Dates: start: 19980501
  3. ACCUTANE [Suspect]
     Indication: ACNE
     Route: 065
     Dates: start: 19950101, end: 19950601

REACTIONS (8)
  - IRON DEFICIENCY ANAEMIA [None]
  - GASTROINTESTINAL INJURY [None]
  - ANAL FISTULA [None]
  - DEPRESSION [None]
  - INTESTINAL OBSTRUCTION [None]
  - CROHN'S DISEASE [None]
  - ANAL ABSCESS [None]
  - COLONIC POLYP [None]
